FAERS Safety Report 8748213 (Version 3)
Quarter: 2015Q1

REPORT INFORMATION
  Report Type: Report from Study
  Country: US (occurrence: US)
  Receive Date: 20120827
  Receipt Date: 20150303
  Transmission Date: 20150721
  Serious: Yes (Death, Other)
  Sender: FDA-Public Use
  Company Number: US-ROCHE-1089761

PATIENT
  Sex: Female

DRUGS (12)
  1. CLEOCIN CREAM [Concomitant]
  2. IMODIUM [Concomitant]
     Active Substance: LOPERAMIDE HYDROCHLORIDE
  3. CARBOPLATIN. [Concomitant]
     Active Substance: CARBOPLATIN
  4. LEVAQUIN [Concomitant]
     Active Substance: LEVOFLOXACIN
  5. TARCEVA [Suspect]
     Active Substance: ERLOTINIB HYDROCHLORIDE
     Indication: MALIGNANT RESPIRATORY TRACT NEOPLASM
     Route: 042
  6. GEMCITABINE [Concomitant]
     Active Substance: GEMCITABINE\GEMCITABINE HYDROCHLORIDE
  7. TAXOL [Concomitant]
     Active Substance: PACLITAXEL
  8. HEPARIN [Concomitant]
     Active Substance: HEPARIN SODIUM
  9. DARVOCET [Concomitant]
     Active Substance: ACETAMINOPHEN\PROPOXYPHENE HYDROCHLORIDE
  10. AVASTIN [Suspect]
     Active Substance: BEVACIZUMAB
     Indication: MALIGNANT RESPIRATORY TRACT NEOPLASM
     Route: 042
     Dates: start: 20050728
  11. ALLEGRA [Concomitant]
     Active Substance: FEXOFENADINE HYDROCHLORIDE
  12. NORMAL SALINE [Concomitant]
     Active Substance: SODIUM CHLORIDE

REACTIONS (21)
  - Dysphonia [Unknown]
  - Urinary tract infection [Unknown]
  - Confusional state [Unknown]
  - Fatigue [Unknown]
  - Rash papular [Unknown]
  - Diplopia [Unknown]
  - Oropharyngeal pain [Unknown]
  - Dysuria [Unknown]
  - Gastrooesophageal reflux disease [Unknown]
  - Vocal cord paralysis [Unknown]
  - Diarrhoea [Unknown]
  - Paranasal sinus hypersecretion [Unknown]
  - Dehydration [Unknown]
  - Death [Fatal]
  - Disease progression [Unknown]
  - Pain [Recovering/Resolving]
  - Mucous membrane disorder [Unknown]
  - Insomnia [Unknown]
  - Abdominal pain [Unknown]
  - Rash [Unknown]
  - Decreased appetite [Unknown]
